FAERS Safety Report 23327963 (Version 1)
Quarter: 2023Q4

REPORT INFORMATION
  Report Type: Report from Study
  Country: US (occurrence: US)
  Receive Date: 20231221
  Receipt Date: 20231221
  Transmission Date: 20240110
  Serious: Yes (Hospitalization, Other)
  Sender: FDA-Public Use
  Company Number: US-MIRATI-MT2023PM05336

PATIENT
  Sex: Female
  Weight: 54.422 kg

DRUGS (2)
  1. KRAZATI [Suspect]
     Active Substance: ADAGRASIB
     Indication: Lung neoplasm malignant
     Dosage: 600 MG, BID
     Route: 048
     Dates: start: 20231027, end: 202312
  2. PEPCID AC [Concomitant]
     Active Substance: FAMOTIDINE

REACTIONS (9)
  - Hospitalisation [Unknown]
  - Brain neoplasm [Unknown]
  - Headache [Unknown]
  - Haemorrhage [Unknown]
  - Urinary tract infection [Unknown]
  - Adverse event [Unknown]
  - Muscular weakness [Unknown]
  - Product dose omission issue [Unknown]
  - Back pain [Recovered/Resolved]

NARRATIVE: CASE EVENT DATE: 20231201
